FAERS Safety Report 24450384 (Version 2)
Quarter: 2024Q4

REPORT INFORMATION
  Report Type: Spontaneous
  Country: US (occurrence: US)
  Receive Date: 20241017
  Receipt Date: 20241118
  Transmission Date: 20250115
  Serious: No
  Sender: Haleon PLC
  Company Number: US-HALEON-2202840

PATIENT
  Sex: Female
  Weight: 77.11 kg

DRUGS (2)
  1. FLONASE [Suspect]
     Active Substance: FLUTICASONE PROPIONATE
     Indication: Hypersensitivity
     Dates: end: 20241014
  2. FLONASE [Suspect]
     Active Substance: FLUTICASONE PROPIONATE
     Indication: Nasal congestion

REACTIONS (2)
  - Paraesthesia oral [Unknown]
  - Headache [Not Recovered/Not Resolved]
